FAERS Safety Report 17251748 (Version 2)
Quarter: 2020Q2

REPORT INFORMATION
  Report Type: Spontaneous
  Country: IT (occurrence: IT)
  Receive Date: 20200109
  Receipt Date: 20200601
  Transmission Date: 20200713
  Serious: Yes (Other)
  Sender: FDA-Public Use
  Company Number: IT-SAMSUNG BIOEPIS-SB-2019-40454

PATIENT
  Age: 47 Year
  Sex: Female

DRUGS (6)
  1. PERTUZUMAB. [Suspect]
     Active Substance: PERTUZUMAB
     Indication: BREAST CANCER
     Dosage: (8 CYCLES)
     Route: 042
     Dates: start: 20160211, end: 20160708
  2. DOCETAXEL. [Suspect]
     Active Substance: DOCETAXEL
     Indication: PRODUCT USED FOR UNKNOWN INDICATION
     Dosage: UNKNOWN (8 CYCLES)
     Route: 065
     Dates: start: 20160211, end: 20160708
  3. TRASTUZUMAB. [Suspect]
     Active Substance: TRASTUZUMAB
     Dosage: UNKNOWN (MAINTENANCE CYCLES)
     Route: 042
     Dates: start: 20160628
  4. BISOPROLOL HEMIFUMARATE [Concomitant]
     Active Substance: BISOPROLOL FUMARATE
     Indication: EJECTION FRACTION
     Route: 048
     Dates: start: 20180614
  5. TRASTUZUMAB. [Suspect]
     Active Substance: TRASTUZUMAB
     Indication: BREAST CANCER
     Dosage: (8 CYCLES)
     Route: 042
     Dates: start: 20160211, end: 20160708
  6. PERTUZUMAB. [Suspect]
     Active Substance: PERTUZUMAB
     Dosage: UNKNOWN (MAINTENANCE CYCLES)
     Route: 042
     Dates: start: 20160628

REACTIONS (2)
  - Tachycardia [Not Recovered/Not Resolved]
  - Ventricular extrasystoles [Not Recovered/Not Resolved]

NARRATIVE: CASE EVENT DATE: 20190909
